FAERS Safety Report 13497296 (Version 1)
Quarter: 2017Q2

REPORT INFORMATION
  Report Type: Spontaneous
  Country: US (occurrence: US)
  Receive Date: 20170428
  Receipt Date: 20170428
  Transmission Date: 20170830
  Serious: No
  Sender: FDA-Public Use
  Company Number: US-ASTRAZENECA-2017SE41923

PATIENT
  Sex: Male
  Weight: 104.3 kg

DRUGS (7)
  1. SPIRIVA TIOTROPIUM [Concomitant]
     Indication: CHRONIC OBSTRUCTIVE PULMONARY DISEASE
     Route: 055
  2. TAMSULOSIN [Concomitant]
     Active Substance: TAMSULOSIN
     Indication: PROSTATIC DISORDER
     Dosage: 04 MG, TWO TIMES A DAY
     Route: 048
     Dates: start: 2016
  3. ALBUTEROL SULFATE INHALER [Concomitant]
     Indication: DYSPNOEA
     Dosage: 90 UG, EVERY 3 TO 4 HOURS AS NEEDED
     Route: 055
  4. SYMBICORT [Suspect]
     Active Substance: BUDESONIDE\FORMOTEROL FUMARATE DIHYDRATE
     Indication: CHRONIC OBSTRUCTIVE PULMONARY DISEASE
     Dosage: 160/4.5 UG, TWO TIMES A DAY
     Route: 055
  5. TOPIRAMATE. [Concomitant]
     Active Substance: TOPIRAMATE
     Indication: NERVE INJURY
     Route: 048
  6. TRAMADOL. [Concomitant]
     Active Substance: TRAMADOL
     Indication: BACK DISORDER
     Dosage: 50 MG AS REQUIRED, ONCE EVERY 3 OR 4 DAYS
     Route: 048
     Dates: start: 2016
  7. NAPROXEN. [Concomitant]
     Active Substance: NAPROXEN
     Indication: ARTHRITIS
     Dosage: 500, TWO TIMES A DAY
     Route: 048

REACTIONS (7)
  - Dyspnoea [Unknown]
  - Body height decreased [Unknown]
  - Drug effect decreased [Unknown]
  - Back disorder [Unknown]
  - Pneumonia [Unknown]
  - Bronchitis [Unknown]
  - Pain [Unknown]
